FAERS Safety Report 19467392 (Version 1)
Quarter: 2021Q2

REPORT INFORMATION
  Report Type: Spontaneous
  Country: US (occurrence: US)
  Receive Date: 20210627
  Receipt Date: 20210627
  Transmission Date: 20210717
  Serious: No
  Sender: FDA-Public Use
  Company Number: None

PATIENT
  Age: 56 Year
  Sex: Female
  Weight: 100.35 kg

DRUGS (7)
  1. OSTEO BIFLEX [Concomitant]
     Active Substance: CHONDROITIN SULFATE A\GLUCOSAMINE
  2. MYRBETRIQ [Suspect]
     Active Substance: MIRABEGRON
     Indication: HYPERTONIC BLADDER
     Dosage: ?          QUANTITY:7 TABLET(S);?
     Route: 048
  3. PREGABLIN [Concomitant]
     Active Substance: PREGABALIN
  4. ABILIFY [Concomitant]
     Active Substance: ARIPIPRAZOLE
  5. CELEBREX [Concomitant]
     Active Substance: CELECOXIB
  6. CALCIUM [Concomitant]
     Active Substance: CALCIUM
  7. CITALOPRAM [Concomitant]
     Active Substance: CITALOPRAM HYDROBROMIDE

REACTIONS (2)
  - Dysgeusia [None]
  - Parosmia [None]

NARRATIVE: CASE EVENT DATE: 20210625
